FAERS Safety Report 14505206 (Version 1)
Quarter: 2018Q1

REPORT INFORMATION
  Report Type: Spontaneous
  Country: TR (occurrence: TR)
  Receive Date: 20180208
  Receipt Date: 20180208
  Transmission Date: 20180509
  Serious: Yes (Other)
  Sender: FDA-Public Use
  Company Number: PHHY2018TR014151

PATIENT
  Age: 48 Year
  Sex: Female

DRUGS (1)
  1. ILARIS [Suspect]
     Active Substance: CANAKINUMAB
     Indication: RENAL DISORDER
     Dosage: 150 MG/ML, Q2MO
     Route: 065

REACTIONS (3)
  - Concomitant disease aggravated [Unknown]
  - Nephropathy [Unknown]
  - Product use in unapproved indication [Unknown]
